FAERS Safety Report 4308624-7 (Version None)
Quarter: 2004Q1

REPORT INFORMATION
  Report Type: 
  Country: None (occurrence: None)
  Receive Date: 20040226
  Receipt Date: 20030211
  Transmission Date: 20041129
  Serious: No
  Sender: FDA-Public Use
  Company Number: 105939

PATIENT
  Age: 12 Year
  Sex: Female
  Weight: 33.2 kg

DRUGS (1)
  1. NUTROPIN [Suspect]
     Indication: BODY HEIGHT BELOW NORMAL
     Dosage: 2.8 MG, 6/WEEK, SUBCUTANEOUS
     Route: 058
     Dates: start: 20010511

REACTIONS (1)
  - SCOLIOSIS [None]
